FAERS Safety Report 9751482 (Version 2)
Quarter: 2013Q4

REPORT INFORMATION
  Report Type: Spontaneous
  Country: US (occurrence: US)
  Receive Date: 20131212
  Receipt Date: 20131212
  Transmission Date: 20140711
  Serious: No
  Sender: FDA-Public Use
  Company Number: US-PURDUE-USA-2013-0106515

PATIENT
  Sex: Male

DRUGS (1)
  1. DILAUDID TABLET [Suspect]
     Indication: PAIN
     Dosage: 8 MG, UNK
     Route: 048

REACTIONS (4)
  - Somnolence [Unknown]
  - Drug ineffective [Unknown]
  - Headache [Unknown]
  - Anxiety [Unknown]
